FAERS Safety Report 23530497 (Version 1)
Quarter: 2024Q1

REPORT INFORMATION
  Report Type: Spontaneous
  Country: JP (occurrence: JP)
  Receive Date: 20240216
  Receipt Date: 20240216
  Transmission Date: 20240410
  Serious: Yes (Other)
  Sender: FDA-Public Use
  Company Number: JP-aspen-SDZ2023JP000806AA

PATIENT
  Age: 67 Year
  Sex: Male
  Weight: 45 kg

DRUGS (5)
  1. LEVOBUPIVACAINE HYDROCHLORIDE [Suspect]
     Active Substance: LEVOBUPIVACAINE HYDROCHLORIDE
     Indication: Epidural anaesthesia
     Dosage: 7 ML (0.5%)
     Route: 008
  2. LEVOBUPIVACAINE HYDROCHLORIDE [Suspect]
     Active Substance: LEVOBUPIVACAINE HYDROCHLORIDE
     Dosage: 7 ML(0.25%)
     Route: 008
  3. LEVOBUPIVACAINE HYDROCHLORIDE [Suspect]
     Active Substance: LEVOBUPIVACAINE HYDROCHLORIDE
     Dosage: 4 ML/H(0.167%)
     Route: 008
  4. MORPHINE HYDROCHLORIDE [Suspect]
     Active Substance: MORPHINE HYDROCHLORIDE
     Indication: Epidural anaesthesia
     Dosage: 2 MG, UNK
     Route: 008
  5. XYLOCAINE [Suspect]
     Active Substance: LIDOCAINE HYDROCHLORIDE
     Indication: Epidural anaesthesia
     Dosage: 3 ML, ONCE/SINGLE
     Route: 008

REACTIONS (2)
  - Quadriplegia [Recovering/Resolving]
  - Blood pressure decreased [Unknown]
